FAERS Safety Report 17845287 (Version 1)
Quarter: 2020Q2

REPORT INFORMATION
  Report Type: Spontaneous
  Country: CA (occurrence: CA)
  Receive Date: 20200601
  Receipt Date: 20200601
  Transmission Date: 20200714
  Serious: Yes (Death)
  Sender: FDA-Public Use
  Company Number: CA-ROCHE-2609743

PATIENT
  Age: 83 Year
  Sex: Female
  Weight: 55 kg

DRUGS (25)
  1. CRANBERRY [VACCINIUM SPP.] [Concomitant]
  2. PANTOLOC [PANTOPRAZOLE] [Concomitant]
     Active Substance: PANTOPRAZOLE SODIUM
  3. PREDNISONE. [Concomitant]
     Active Substance: PREDNISONE
  4. RAMIPRIL. [Concomitant]
     Active Substance: RAMIPRIL
  5. SULFATRIM [Concomitant]
     Active Substance: SULFAMETHOXAZOLE\TRIMETHOPRIM
  6. RITUXIMAB. [Suspect]
     Active Substance: RITUXIMAB
     Indication: RHEUMATOID ARTHRITIS
     Route: 042
  7. ESOMEPRAZOLE. [Suspect]
     Active Substance: ESOMEPRAZOLE MAGNESIUM
     Indication: GASTROOESOPHAGEAL REFLUX DISEASE
     Route: 065
  8. SEPTRA [Concomitant]
     Active Substance: SULFAMETHOXAZOLE\TRIMETHOPRIM
  9. VITAMIN C [Concomitant]
     Active Substance: ASCORBIC ACID
  10. BISOPROLOL [Suspect]
     Active Substance: BISOPROLOL
     Indication: CARDIAC DISORDER
     Route: 048
  11. MACROBID [Suspect]
     Active Substance: NITROFURANTOIN\NITROFURANTOIN MONOHYDRATE
     Indication: CYSTITIS
     Route: 065
  12. ACETAMINOPHEN. [Concomitant]
     Active Substance: ACETAMINOPHEN
  13. DIPHENHYDRAMINE HYDROCHLORIDE. [Concomitant]
     Active Substance: DIPHENHYDRAMINE HYDROCHLORIDE
  14. METHYLPREDNISOLONE. [Concomitant]
     Active Substance: METHYLPREDNISOLONE
  15. SPIRONOLACTONE. [Concomitant]
     Active Substance: SPIRONOLACTONE
  16. TYLENOL ARTHRITIS PAIN [Concomitant]
     Active Substance: ACETAMINOPHEN
  17. CLOPIDOGREL [Concomitant]
     Active Substance: CLOPIDOGREL BISULFATE
  18. HYDROXYCHLOROQUINE SULFATE. [Concomitant]
     Active Substance: HYDROXYCHLOROQUINE SULFATE
  19. CIPROFLOXACIN. [Concomitant]
     Active Substance: CIPROFLOXACIN
  20. CLOPIDOGREL BISULFATE. [Concomitant]
     Active Substance: CLOPIDOGREL BISULFATE
  21. DOMPERIDONE [Concomitant]
     Active Substance: DOMPERIDONE
  22. ENBREL [Concomitant]
     Active Substance: ETANERCEPT
  23. LASIX [Concomitant]
     Active Substance: FUROSEMIDE
  24. PLAQUENIL [Concomitant]
     Active Substance: HYDROXYCHLOROQUINE SULFATE
  25. ACTONEL [Concomitant]
     Active Substance: RISEDRONATE SODIUM

REACTIONS (30)
  - Abdominal pain [Fatal]
  - C-reactive protein increased [Fatal]
  - Chest injury [Fatal]
  - Death [Fatal]
  - Musculoskeletal stiffness [Fatal]
  - Gastroenteritis viral [Fatal]
  - Syncope [Fatal]
  - Inflammation [Fatal]
  - Nausea [Fatal]
  - Respiratory rate increased [Fatal]
  - Vomiting [Fatal]
  - Decreased appetite [Fatal]
  - Dyspnoea [Fatal]
  - Joint swelling [Fatal]
  - Arthralgia [Fatal]
  - Fall [Fatal]
  - Fluid retention [Fatal]
  - Heart rate increased [Fatal]
  - Pain [Fatal]
  - Cystitis [Fatal]
  - Drug hypersensitivity [Fatal]
  - Dyspnoea exertional [Fatal]
  - Gastrooesophageal reflux disease [Fatal]
  - Oxygen saturation decreased [Fatal]
  - Weight decreased [Fatal]
  - Cardiac disorder [Fatal]
  - Interstitial lung disease [Fatal]
  - Pneumonia [Fatal]
  - Swelling [Fatal]
  - Urinary tract infection [Fatal]
